FAERS Safety Report 16791302 (Version 1)
Quarter: 2019Q3

REPORT INFORMATION
  Report Type: Report from Study
  Country: CA (occurrence: CA)
  Receive Date: 20190910
  Receipt Date: 20190910
  Transmission Date: 20191005
  Serious: Yes (Other)
  Sender: FDA-Public Use
  Company Number: CA-BRISTOL-MYERS SQUIBB COMPANY-BMS-2017-024525

PATIENT
  Age: 78 Year
  Sex: Female

DRUGS (1)
  1. ABATACEPT [Suspect]
     Active Substance: ABATACEPT
     Indication: RHEUMATOID ARTHRITIS
     Dosage: 750 MG, Q4WK
     Route: 042
     Dates: start: 20090608

REACTIONS (16)
  - Oropharyngeal pain [Recovering/Resolving]
  - Fall [Unknown]
  - Skin ulcer [Unknown]
  - Blood pressure increased [Recovered/Resolved]
  - Basal cell carcinoma [Not Recovered/Not Resolved]
  - Syncope [Unknown]
  - Limb injury [Unknown]
  - Joint injury [Unknown]
  - Headache [Recovered/Resolved]
  - Sciatica [Not Recovered/Not Resolved]
  - Contusion [Unknown]
  - Feeling hot [Recovering/Resolving]
  - Feeling cold [Recovering/Resolving]
  - Malaise [Recovering/Resolving]
  - Poor venous access [Recovered/Resolved]
  - Anxiety [Recovered/Resolved]

NARRATIVE: CASE EVENT DATE: 20171016
